FAERS Safety Report 11464806 (Version 6)
Quarter: 2016Q2

REPORT INFORMATION
  Report Type: Spontaneous
  Country: JP (occurrence: JP)
  Receive Date: 20150906
  Receipt Date: 20160401
  Transmission Date: 20160815
  Serious: Yes (Death, Hospitalization, Other)
  Sender: FDA-Public Use
  Company Number: JP-009507513-1509JPN002087

PATIENT
  Age: 64 Year
  Sex: Male
  Weight: 57 kg

DRUGS (7)
  1. EBRANTIL [Concomitant]
     Active Substance: URAPIDIL
     Indication: NEUROGENIC BLADDER
     Dosage: 15 MG, BID, ROUTE OF ADMINISTRATION: PASSING TUBE
     Route: 050
     Dates: start: 20120807
  2. E KEPPRA [Concomitant]
     Active Substance: LEVETIRACETAM
     Indication: EPILEPSY
     Dosage: 500 MG, BID, ROUTE OF ADMINISTRATION: PASSING TUBE
     Route: 050
     Dates: start: 20130203
  3. LIORESAL [Concomitant]
     Active Substance: BACLOFEN
     Indication: QUADRIPLEGIA
     Dosage: 15 MG, BID, ROUTE OF ADMINISTRATION: PASSING TUBE
     Route: 050
     Dates: start: 20141022
  4. TEMODAL [Suspect]
     Active Substance: TEMOZOLOMIDE
     Indication: ANAPLASTIC ASTROCYTOMA
     Dosage: 340 MG ONCE A DAY, 150 MG/M^2 X 5 DAYS, 37 CYCLES, SINGLE THERAPY
     Route: 041
     Dates: start: 201209, end: 20150719
  5. TEMODAL [Suspect]
     Active Substance: TEMOZOLOMIDE
     Dosage: 250 MG, QD
     Dates: start: 20150907, end: 20151009
  6. DEPAKENE [Concomitant]
     Active Substance: VALPROIC ACID
     Indication: EPILEPSY
     Dosage: 8 ML, BID, ROUTE OF ADMINISTRATION: PASSING TUBE
     Route: 050
     Dates: start: 20130125
  7. UBRETID [Concomitant]
     Active Substance: DISTIGMINE BROMIDE
     Indication: NEUROGENIC BLADDER
     Dosage: 5 MG, QD, ROUTE OF ADMINISTRATION: PASSING TUBE
     Route: 050
     Dates: start: 20120807

REACTIONS (3)
  - Lung neoplasm malignant [Fatal]
  - Pleural effusion [Recovering/Resolving]
  - Metastases to bone [Unknown]

NARRATIVE: CASE EVENT DATE: 20150803
